FAERS Safety Report 6216437-4 (Version None)
Quarter: 2009Q2

REPORT INFORMATION
  Report Type: 
  Country: None (occurrence: None)
  Receive Date: 20090605
  Receipt Date: 20090529
  Transmission Date: 20091009
  Serious: Yes (Death, Other)
  Sender: FDA-Public Use
  Company Number: JP-BAYER-200911178BYL

PATIENT
  Age: 6 Year
  Sex: Male
  Weight: 19 kg

DRUGS (13)
  1. FLUDARA [Suspect]
     Indication: MYELODYSPLASTIC SYNDROME
     Dosage: UNIT DOSE: 50 MG
     Route: 042
     Dates: start: 20080725, end: 20080728
  2. BUSULFAN [Suspect]
     Indication: ALLOGENIC BONE MARROW TRANSPLANTATION THERAPY
     Route: 042
     Dates: start: 20080721, end: 20080724
  3. ALKERAN [Suspect]
     Indication: ALLOGENIC BONE MARROW TRANSPLANTATION THERAPY
     Route: 042
     Dates: start: 20080725, end: 20080726
  4. CLONAZEPAM [Concomitant]
     Indication: CONVULSION PROPHYLAXIS
     Route: 048
     Dates: start: 20080721, end: 20080725
  5. PROGRAF [Concomitant]
     Indication: PROPHYLAXIS AGAINST GRAFT VERSUS HOST DISEASE
     Route: 042
     Dates: start: 20080729, end: 20080915
  6. PREDNISOLONE SODIUM SUCCINATE INJ [Concomitant]
     Indication: PROPHYLAXIS AGAINST GRAFT VERSUS HOST DISEASE
     Route: 042
     Dates: start: 20080809, end: 20080914
  7. CELLCEPT [Concomitant]
     Indication: PROPHYLAXIS AGAINST GRAFT VERSUS HOST DISEASE
     Route: 048
     Dates: start: 20080730, end: 20080730
  8. ZYLORIC [Concomitant]
     Route: 048
     Dates: start: 20080721, end: 20080729
  9. URSO 250 [Concomitant]
     Route: 048
     Dates: start: 20080721, end: 20080915
  10. GRAN [Concomitant]
     Indication: INFECTION PROPHYLAXIS
     Route: 042
     Dates: start: 20080811, end: 20080814
  11. CONCENTRATED RED CELLS [Concomitant]
     Indication: PACKED RED BLOOD CELL TRANSFUSION
     Route: 042
     Dates: start: 20080730, end: 20080915
  12. PLATELETS [Concomitant]
     Indication: PLATELET TRANSFUSION
     Route: 042
     Dates: start: 20080730, end: 20080915
  13. FRESH FROZEN PLASMA [Concomitant]
     Indication: BLOOD PRODUCT TRANSFUSION
     Route: 042
     Dates: start: 20080730, end: 20080915

REACTIONS (5)
  - ACUTE GRAFT VERSUS HOST DISEASE [None]
  - FEBRILE NEUTROPENIA [None]
  - SEPSIS [None]
  - THROMBOTIC MICROANGIOPATHY [None]
  - VENOOCCLUSIVE DISEASE [None]
